FAERS Safety Report 8298522-9 (Version None)
Quarter: 2012Q2

REPORT INFORMATION
  Report Type: 
  Country: None (occurrence: None)
  Receive Date: 20120417
  Receipt Date: 20120403
  Transmission Date: 20120825
  Serious: Yes (Death, Hospitalization, Other)
  Sender: FDA-Public Use
  Company Number: FK201201045

PATIENT
  Age: 37 Year
  Sex: Male

DRUGS (2)
  1. CLOTRIMAZOLE [Suspect]
     Indication: PSORIASIS
  2. METHOTREXATE [Suspect]
     Indication: PSORIASIS

REACTIONS (19)
  - DYSPHAGIA [None]
  - STEVENS-JOHNSON SYNDROME [None]
  - HYPOTENSION [None]
  - TOXICITY TO VARIOUS AGENTS [None]
  - ODYNOPHAGIA [None]
  - PANCYTOPENIA [None]
  - HEPATITIS ACUTE [None]
  - TENDERNESS [None]
  - DIARRHOEA [None]
  - OVERDOSE [None]
  - ERYTHEMA [None]
  - DRUG INTERACTION [None]
  - FEBRILE NEUTROPENIA [None]
  - CONDITION AGGRAVATED [None]
  - DYSPNOEA [None]
  - RENAL FAILURE ACUTE [None]
  - PSORIASIS [None]
  - BACK PAIN [None]
  - NECROSIS [None]
